FAERS Safety Report 4648412-5 (Version None)
Quarter: 2005Q2

REPORT INFORMATION
  Report Type: 
  Country: None (occurrence: None)
  Receive Date: 20050427
  Receipt Date: 20050411
  Transmission Date: 20051028
  Serious: Yes (Hospitalization)
  Sender: FDA-Public Use
  Company Number: EWC050342916

PATIENT
  Age: 21 Year
  Sex: Male

DRUGS (1)
  1. ZYPREXA [Suspect]
     Indication: SCHIZOPHRENIA
     Dosage: 20 MG/1 DAY
     Dates: start: 20041001, end: 20050223

REACTIONS (6)
  - ALVEOLITIS ALLERGIC [None]
  - CENTRAL-ALVEOLAR HYPOVENTILATION [None]
  - CHRONIC RESPIRATORY FAILURE [None]
  - COMPUTERISED TOMOGRAM ABNORMAL [None]
  - EXTRAPYRAMIDAL DISORDER [None]
  - PNEUMONIA [None]
